FAERS Safety Report 7243932-1 (Version None)
Quarter: 2011Q1

REPORT INFORMATION
  Report Type: 
  Country: None (occurrence: None)
  Receive Date: 20110125
  Receipt Date: 20110114
  Transmission Date: 20110831
  Serious: Yes (Other)
  Sender: FDA-Public Use
  Company Number: B0695155A

PATIENT
  Sex: Female
  Weight: 73 kg

DRUGS (2)
  1. ZELITREX [Suspect]
     Dosage: 500MG TWICE PER DAY
     Route: 048
     Dates: start: 20100301, end: 20110101
  2. CORTISONE [Concomitant]
     Route: 047
     Dates: start: 20100301, end: 20101101

REACTIONS (10)
  - HALLUCINATION [None]
  - SOMNOLENCE [None]
  - DIZZINESS [None]
  - NAUSEA [None]
  - ABDOMINAL PAIN [None]
  - OFF LABEL USE [None]
  - MEMORY IMPAIRMENT [None]
  - DIARRHOEA [None]
  - PRURITUS [None]
  - ANXIETY [None]
